FAERS Safety Report 23629907 (Version 1)
Quarter: 2024Q1

REPORT INFORMATION
  Report Type: Spontaneous
  Country: NL (occurrence: NL)
  Receive Date: 20240314
  Receipt Date: 20240314
  Transmission Date: 20240409
  Serious: Yes (Other)
  Sender: FDA-Public Use
  Company Number: None

PATIENT
  Age: 85 Year
  Sex: Male
  Weight: 64 kg

DRUGS (2)
  1. DICLOFENAC SODIUM [Suspect]
     Active Substance: DICLOFENAC\DICLOFENAC SODIUM
     Indication: Pain
     Dosage: DICLOFENAC-NATRIUM TABLET MSR 50MG / BRAND NAME NOT SPECIFIED, 1 PIECE ONCE PER DAY
     Route: 065
     Dates: start: 20140412, end: 20231214
  2. ESOMEPRAZOLE [Concomitant]
     Active Substance: ESOMEPRAZOLE
     Indication: Product used for unknown indication
     Dosage: CAPSULE MSR / BRAND NAME NOT SPECIFIED
     Route: 065

REACTIONS (1)
  - Gastric haemorrhage [Unknown]
